FAERS Safety Report 7378262-0 (Version None)
Quarter: 2011Q1

REPORT INFORMATION
  Report Type: 
  Country: None (occurrence: None)
  Receive Date: 20110328
  Receipt Date: 20110325
  Transmission Date: 20110831
  Serious: Yes (Disabling)
  Sender: FDA-Public Use
  Company Number: D0069997A

PATIENT
  Sex: Male

DRUGS (3)
  1. ACTOPLUS MET [Concomitant]
     Route: 065
  2. DELIX PLUS [Concomitant]
     Indication: HYPERTENSION
     Route: 065
  3. AVANDAMET [Suspect]
     Route: 048
     Dates: start: 20070901, end: 20100928

REACTIONS (3)
  - OESOPHAGEAL CARCINOMA [None]
  - SQUAMOUS CELL CARCINOMA [None]
  - PROSTATE CANCER [None]
